FAERS Safety Report 19819777 (Version 1)
Quarter: 2021Q3

REPORT INFORMATION
  Report Type: Spontaneous
  Country: US (occurrence: US)
  Receive Date: 20210913
  Receipt Date: 20210913
  Transmission Date: 20211014
  Serious: No
  Sender: FDA-Public Use
  Company Number: US-AMGEN-USASP2021139378

PATIENT
  Sex: Male

DRUGS (4)
  1. YELLOW FEVER VACCINE NOS [Concomitant]
     Active Substance: YELLOW FEVER VIRUS STRAIN 17D-204 LIVE ANTIGEN
     Dosage: UNK
  2. ENBREL [Suspect]
     Active Substance: ETANERCEPT
     Dosage: 50 MILLIGRAM, QWK
     Route: 065
  3. COVID?19 VACCINE [Concomitant]
     Dosage: UNK
     Dates: start: 202101
  4. ENBREL [Suspect]
     Active Substance: ETANERCEPT
     Indication: PRODUCT USED FOR UNKNOWN INDICATION
     Dosage: UNK, 2 TIMES/WK
     Route: 065

REACTIONS (1)
  - Therapeutic product effect incomplete [Unknown]
